FAERS Safety Report 4734991-6 (Version None)
Quarter: 2005Q3

REPORT INFORMATION
  Report Type: 
  Country: None (occurrence: None)
  Receive Date: 20050804
  Receipt Date: 20050721
  Transmission Date: 20060218
  Serious: Yes (Other)
  Sender: FDA-Public Use
  Company Number: USA050598901

PATIENT
  Age: 72 Year
  Sex: Female

DRUGS (3)
  1. FORTEO [Suspect]
     Indication: OSTEOPOROSIS
     Dates: start: 20041208, end: 20050501
  2. NEXIUM [Concomitant]
  3. DARVOCET [Concomitant]

REACTIONS (18)
  - ARTHRALGIA [None]
  - BALANCE DISORDER [None]
  - BURSITIS [None]
  - CEREBRAL ISCHAEMIA [None]
  - CEREBRAL VENTRICLE DILATATION [None]
  - DIARRHOEA [None]
  - DIFFICULTY IN WALKING [None]
  - DIZZINESS [None]
  - GAIT DISTURBANCE [None]
  - HYPERTENSION [None]
  - LABYRINTHITIS [None]
  - LACUNAR INFARCTION [None]
  - LETHARGY [None]
  - PAIN IN EXTREMITY [None]
  - PHARMACEUTICAL PRODUCT COMPLAINT [None]
  - RHEUMATOID FACTOR INCREASED [None]
  - STOMACH DISCOMFORT [None]
  - URINE ODOUR ABNORMAL [None]
